FAERS Safety Report 9277337 (Version 1)
Quarter: 2013Q2

REPORT INFORMATION
  Report Type: Spontaneous
  Country: US (occurrence: None)
  Receive Date: 20130503
  Receipt Date: 20130503
  Transmission Date: 20140414
  Serious: Yes (Other)
  Sender: FDA-Public Use
  Company Number: None

PATIENT
  Age: 55 Year
  Sex: Female
  Weight: 72.58 kg

DRUGS (1)
  1. VENLAFAXINE [Suspect]
     Indication: ANXIETY
     Dosage: 1  ../1 PER DAY

REACTIONS (7)
  - Abnormal dreams [None]
  - Emotional disorder [None]
  - Discomfort [None]
  - Feeling abnormal [None]
  - Crying [None]
  - Apathy [None]
  - Social avoidant behaviour [None]
